FAERS Safety Report 18726429 (Version 2)
Quarter: 2021Q2

REPORT INFORMATION
  Report Type: Spontaneous
  Country: FR (occurrence: FR)
  Receive Date: 20210111
  Receipt Date: 20210630
  Transmission Date: 20210717
  Serious: Yes (Death, Other)
  Sender: FDA-Public Use
  Company Number: FR-TEVA-2021-FR-1866698

PATIENT

DRUGS (4)
  1. RALTEGRAVIR POTASSIUM [Suspect]
     Active Substance: RALTEGRAVIR POTASSIUM
     Dosage: UNIT DOSE :800 MG  ,400 MILLIGRAM, TWICE A DAY
     Route: 065
  2. DARUNAVIR [Suspect]
     Active Substance: DARUNAVIR
     Dosage: UNIT DOSE :1200 MG ,600 MILLIGRAM, TWICE DAILY
     Route: 065
  3. RITONAVIR. [Suspect]
     Active Substance: RITONAVIR
     Dosage: UNIT DOSE :200 MG  ,100 MILLIGRAM, TWICE A DAY
     Route: 065
  4. ETRAVIRINE [Suspect]
     Active Substance: ETRAVIRINE
     Dosage: UNIT DOSE :400 MG ,200 MILLIGRAM, TWICE DAILY
     Route: 065

REACTIONS (5)
  - Death [Fatal]
  - Treatment failure [Unknown]
  - Drug resistance [Unknown]
  - CD4 lymphocytes decreased [Unknown]
  - CD4/CD8 ratio decreased [Unknown]
